FAERS Safety Report 16080849 (Version 1)
Quarter: 2019Q1

REPORT INFORMATION
  Report Type: Spontaneous
  Country: SI (occurrence: SI)
  Receive Date: 20190316
  Receipt Date: 20190316
  Transmission Date: 20190418
  Serious: Yes (Hospitalization, Other)
  Sender: FDA-Public Use
  Company Number: SI-TEVA-2019-SI-1023650

PATIENT
  Age: 72 Year
  Sex: Male

DRUGS (8)
  1. NOVONORM [Concomitant]
     Active Substance: REPAGLINIDE
  2. MIRZATEN 30 MG [Concomitant]
  3. LANZUL 30 MG [Concomitant]
  4. PRENESSA 4 MG [Concomitant]
  5. DEXAMETHASONE. [Concomitant]
     Active Substance: DEXAMETHASONE
     Dosage: ACCORDING TO THE SCHEME
  6. EPOSIN 20 MG/ML [Suspect]
     Active Substance: ETOPOSIDE
     Indication: LUNG NEOPLASM MALIGNANT
     Dosage: 20 MG/ML CONCENTRATE FOR SOLUTION FOR INFUSION
     Route: 042
     Dates: start: 20190201, end: 20190201
  7. CORYOL 3,125 MG [Concomitant]
  8. ASPIRIN 100 MG [Concomitant]
     Active Substance: ASPIRIN

REACTIONS (1)
  - Infusion related reaction [Recovered/Resolved]

NARRATIVE: CASE EVENT DATE: 20190201
